FAERS Safety Report 22149566 (Version 1)
Quarter: 2023Q1

REPORT INFORMATION
  Report Type: Spontaneous
  Country: US (occurrence: None)
  Receive Date: 20230329
  Receipt Date: 20230329
  Transmission Date: 20230417
  Serious: No
  Sender: FDA-Public Use
  Company Number: 2023A053879

PATIENT
  Sex: Female

DRUGS (7)
  1. TEZSPIRE [Suspect]
     Active Substance: TEZEPELUMAB-EKKO
     Indication: Asthma
     Dosage: INJECT 210MG SKJBCUTANEOUSLY
     Route: 058
     Dates: start: 20230202
  2. SYMBICORT [Suspect]
     Active Substance: BUDESONIDE\FORMOTEROL FUMARATE DIHYDRATE
     Dosage: UNKNOWN UNKNOWN
     Route: 055
  3. ALBUTEROL [Concomitant]
     Active Substance: ALBUTEROL
  4. HUMULIN NOS [Concomitant]
     Active Substance: INSULIN HUMAN
     Dosage: 100 UNIT/ML
  5. LOSARTAN [Concomitant]
     Active Substance: LOSARTAN
     Dosage: 100.0UG UNKNOWN
  6. METFORMIN [Concomitant]
     Active Substance: METFORMIN HYDROCHLORIDE
     Dosage: 1000.0UG/(100.G) UNKNOWN
  7. SPIRIVA [Concomitant]
     Active Substance: TIOTROPIUM BROMIDE MONOHYDRATE
     Dosage: 18.0UG UNKNOWN

REACTIONS (2)
  - Drug ineffective [Unknown]
  - Dyspnoea [Unknown]
